FAERS Safety Report 5278411-4 (Version None)
Quarter: 2007Q1

REPORT INFORMATION
  Report Type: 
  Country: None (occurrence: None)
  Receive Date: 20070328
  Receipt Date: 20070319
  Transmission Date: 20070707
  Serious: Yes (Hospitalization)
  Sender: FDA-Public Use
  Company Number: 2007AC00456

PATIENT
  Age: 7677 Day
  Sex: Female
  Weight: 60 kg

DRUGS (3)
  1. SEROQUEL [Suspect]
     Indication: SCHIZOPHRENIA
     Route: 048
     Dates: start: 20020301
  2. SEROQUEL [Suspect]
     Dosage: DOSE REDUCED
     Route: 048
  3. MICROGYNON [Concomitant]
     Dates: start: 20020301, end: 20060514

REACTIONS (5)
  - CONVULSION [None]
  - DRY MOUTH [None]
  - FATIGUE [None]
  - SYNCOPE [None]
  - VISUAL ACUITY REDUCED [None]
